FAERS Safety Report 19906968 (Version 1)
Quarter: 2021Q4

REPORT INFORMATION
  Report Type: Report from Study
  Country: DE (occurrence: DE)
  Receive Date: 20211001
  Receipt Date: 20211001
  Transmission Date: 20220304
  Serious: Yes (Hospitalization, Other)
  Sender: FDA-Public Use
  Company Number: DE-NOVPHSZ-PHHY2018DE073938

PATIENT
  Age: 80 Year
  Sex: Female
  Weight: 75 kg

DRUGS (41)
  1. DOXORUBICIN [Suspect]
     Active Substance: DOXORUBICIN
     Indication: Diffuse large B-cell lymphoma
     Dosage: 95 MG, (INFUSION RATE 500 ML/MIN FROM 12:15 TO 12:40)
     Route: 041
     Dates: start: 20180604, end: 20180604
  2. DOXORUBICIN [Suspect]
     Active Substance: DOXORUBICIN
     Dosage: 95 MG, (INFUSION RATE 500 ML/MIN FROM 13:30 TO 14:00)
     Route: 041
     Dates: start: 20180313, end: 20180313
  3. DOXORUBICIN [Suspect]
     Active Substance: DOXORUBICIN
     Dosage: 95 MG, (INFUSION RATE 500 ML/MIN FROM 11:45 TO 12:30)
     Route: 041
     Dates: start: 20180220, end: 20180220
  4. DOXORUBICIN [Suspect]
     Active Substance: DOXORUBICIN
     Dosage: 95 MG, (INFUSION RATE 500 ML/MIN FROM 13:00 TO 13:30)
     Route: 041
     Dates: start: 20180410, end: 20180410
  5. DOXORUBICIN [Suspect]
     Active Substance: DOXORUBICIN
     Dosage: 95 MG, (INFUSION RATE 500 ML/MIN FROM 10:45 TO 11:45)
     Route: 041
     Dates: start: 20180514, end: 20180514
  6. DOXORUBICIN [Suspect]
     Active Substance: DOXORUBICIN
     Dosage: 95 MG, (INFUSION RATE 3.1 ML/MIN FROM 13:30 TO 14:00)
     Route: 041
     Dates: start: 20180201, end: 20180201
  7. CYCLOPHOSPHAMIDE [Suspect]
     Active Substance: CYCLOPHOSPHAMIDE
     Indication: Diffuse large B-cell lymphoma
     Dosage: 1425 MG, (INFUSION RATE 80.75 ML/MIN FROM 12:30 TO 13:30)
     Route: 041
     Dates: start: 20180201, end: 20180201
  8. CYCLOPHOSPHAMIDE [Suspect]
     Active Substance: CYCLOPHOSPHAMIDE
     Dosage: 1425 MG, (INFUSION RATE 510 ML/MIN FROM 12:30 TO 13:30)
     Route: 041
     Dates: start: 20180313, end: 20180313
  9. CYCLOPHOSPHAMIDE [Suspect]
     Active Substance: CYCLOPHOSPHAMIDE
     Dosage: 1425 MG, (INFUSION RATE 500 ML/MIN FROM 11:15 TO 12:15)
     Route: 041
     Dates: start: 20180604, end: 20180604
  10. CYCLOPHOSPHAMIDE [Suspect]
     Active Substance: CYCLOPHOSPHAMIDE
     Dosage: 1425 MG, (INFUSION RATE 500 ML/MIN FROM 12:00 TO 13:00)
     Route: 041
     Dates: start: 20180410, end: 20180410
  11. CYCLOPHOSPHAMIDE [Suspect]
     Active Substance: CYCLOPHOSPHAMIDE
     Dosage: 1425 MG, (INFUSION RATE 500 ML/MIN FROM 11:45 TO 12:15)
     Route: 041
     Dates: start: 20180514, end: 20180514
  12. CYCLOPHOSPHAMIDE [Suspect]
     Active Substance: CYCLOPHOSPHAMIDE
     Dosage: 1425 MG, (INFUSION RATE 510 ML/MIN FROM 10:30 TO 11:30)
     Route: 041
     Dates: start: 20180220, end: 20180220
  13. PREDNISONE [Suspect]
     Active Substance: PREDNISONE
     Indication: Diffuse large B-cell lymphoma
     Dosage: 600 MG, UNK
     Route: 048
     Dates: start: 20180514, end: 20180521
  14. PREDNISONE [Suspect]
     Active Substance: PREDNISONE
     Dosage: 600 MG, UNK
     Route: 048
     Dates: start: 20180201, end: 20180208
  15. PREDNISONE [Suspect]
     Active Substance: PREDNISONE
     Dosage: 600 MG, UNK
     Route: 048
     Dates: start: 20180313, end: 20180320
  16. PREDNISONE [Suspect]
     Active Substance: PREDNISONE
     Dosage: 600 MG, UNK
     Route: 048
     Dates: start: 20180220, end: 20180227
  17. PREDNISONE [Suspect]
     Active Substance: PREDNISONE
     Dosage: 600 MG, UNK
     Route: 048
     Dates: start: 20180604, end: 20180611
  18. PREDNISONE [Suspect]
     Active Substance: PREDNISONE
     Dosage: 600 MG, UNK
     Route: 048
     Dates: start: 20180410, end: 20180417
  19. VINCRISTINE [Suspect]
     Active Substance: VINCRISTINE
     Indication: Diffuse large B-cell lymphoma
     Dosage: 1 MG, (INFUSION RATE 0.5 ML/MIN FROM 14:00 TO 14:04)
     Route: 041
     Dates: start: 20180201, end: 20180201
  20. VINCRISTINE [Suspect]
     Active Substance: VINCRISTINE
     Dosage: 1 MG, (INFUSION RATE 1 ML/MIN FROM 12:40 TO 13:00)
     Route: 041
     Dates: start: 20180220, end: 20180220
  21. VINCRISTINE [Suspect]
     Active Substance: VINCRISTINE
     Dosage: 1 MG, UNK
     Route: 041
     Dates: start: 20180313, end: 20180313
  22. RITUXIMAB [Suspect]
     Active Substance: RITUXIMAB
     Indication: Diffuse large B-cell lymphoma
     Dosage: 715 MG, (INFUSION RATE 400 (ML/MIN FROM 9:10 TO 11:15)
     Route: 041
     Dates: start: 20180604, end: 20180604
  23. RITUXIMAB [Suspect]
     Active Substance: RITUXIMAB
     Dosage: 715 MG, (INFUSION RATE 400 (ML/MIN FROM 9:20 TO 10:30)
     Route: 041
     Dates: start: 20180220, end: 20180220
  24. RITUXIMAB [Suspect]
     Active Substance: RITUXIMAB
     Dosage: 715 MG, (INFUSION RATE 450 ML/MIN FROM 8:50 TO 12:00)
     Route: 041
     Dates: start: 20180410, end: 20180410
  25. RITUXIMAB [Suspect]
     Active Substance: RITUXIMAB
     Dosage: 715 MG, (INFUSION RATE 500 ML/MIN FROM 9:04 TO 11:50)
     Route: 041
     Dates: start: 20180625, end: 20180625
  26. RITUXIMAB [Suspect]
     Active Substance: RITUXIMAB
     Dosage: 715 MG, (INFUSION RATE 7 ML/MIN FROM 09:30-12:30)
     Route: 041
     Dates: start: 20180201, end: 20180201
  27. RITUXIMAB [Suspect]
     Active Substance: RITUXIMAB
     Dosage: 715 MG, (INFUSION RATE 400 (ML/MIN FROM 9:15 TO 10:45)
     Route: 041
     Dates: start: 20180514, end: 20180514
  28. RITUXIMAB [Suspect]
     Active Substance: RITUXIMAB
     Dosage: 715 MG, (INFUSION RATE 500 ML/MIN FROM 9:00 TO 11:10)
     Route: 041
     Dates: start: 20180716
  29. RITUXIMAB [Suspect]
     Active Substance: RITUXIMAB
     Dosage: 715 MG, (INFUSION RATE 400 ML/MIN FROM 9:20 TO 12:30)
     Route: 041
     Dates: start: 20180313, end: 20180313
  30. MCP [Concomitant]
     Active Substance: METOCLOPRAMIDE HYDROCHLORIDE
     Indication: Prophylaxis
     Dosage: UNK
     Route: 048
     Dates: start: 20180201
  31. CLEMASTINE FUMARATE [Concomitant]
     Active Substance: CLEMASTINE FUMARATE
     Indication: Prophylaxis
     Dosage: UNK
     Route: 042
     Dates: start: 20180201, end: 20180716
  32. HYDROCHLOROTHIAZIDE [Concomitant]
     Active Substance: HYDROCHLOROTHIAZIDE
     Indication: Hypertension
     Dosage: UNK
     Route: 048
     Dates: start: 20180108
  33. BISOPROLOL [Concomitant]
     Active Substance: BISOPROLOL
     Indication: Hypertension
     Dosage: UNK
     Route: 048
     Dates: start: 20180108
  34. SULFAMETHOXAZOLE\TRIMETHOPRIM [Concomitant]
     Active Substance: SULFAMETHOXAZOLE\TRIMETHOPRIM
     Indication: Prophylaxis
     Dosage: UNK
     Route: 048
     Dates: start: 20180201
  35. DICLOFENAC [Concomitant]
     Active Substance: DICLOFENAC
     Indication: Prophylaxis
     Dosage: UNK
     Route: 048
     Dates: start: 20180108
  36. LIPEGFILGRASTIM [Concomitant]
     Active Substance: LIPEGFILGRASTIM
     Indication: Prophylaxis
     Dosage: UNK
     Route: 058
     Dates: start: 20180205, end: 20180716
  37. PREDNISOLONE SODIUM SUCCINATE [Concomitant]
     Active Substance: PREDNISOLONE SODIUM SUCCINATE
     Indication: Prophylaxis
     Dosage: UNK
     Route: 042
     Dates: start: 20180201, end: 20180201
  38. ONDANSETRON [Concomitant]
     Active Substance: ONDANSETRON
     Indication: Prophylaxis
     Dosage: UNK
     Route: 042
     Dates: start: 20180201, end: 20180716
  39. MESNA [Concomitant]
     Active Substance: MESNA
     Indication: Prophylaxis
     Dosage: UNK
     Route: 048
     Dates: start: 20180201, end: 20180201
  40. MESNA [Concomitant]
     Active Substance: MESNA
     Dosage: UNK
     Route: 042
     Dates: start: 20180201, end: 20180716
  41. ACETAMINOPHEN [Concomitant]
     Active Substance: ACETAMINOPHEN
     Indication: Prophylaxis
     Dosage: UNK
     Route: 048
     Dates: start: 20180201

REACTIONS (3)
  - Peripheral vascular disorder [Recovered/Resolved]
  - Neuropathy peripheral [Unknown]
  - Diarrhoea [Recovered/Resolved]

NARRATIVE: CASE EVENT DATE: 20180313
